FAERS Safety Report 7595192-X (Version None)
Quarter: 2011Q3

REPORT INFORMATION
  Report Type: 
  Country: None (occurrence: None)
  Receive Date: 20110707
  Receipt Date: 20110630
  Transmission Date: 20111222
  Serious: Yes (Death, Other)
  Sender: FDA-Public Use
  Company Number: US-PFIZER INC-2011147945

PATIENT
  Sex: Male

DRUGS (1)
  1. RAPAMUNE [Suspect]
     Indication: BONE MARROW DISORDER
     Dosage: 3 MG, 1X/DAY
     Dates: start: 20110110, end: 20110613

REACTIONS (3)
  - RECURRENT CANCER [None]
  - DEATH [None]
  - HIP SURGERY [None]
